FAERS Safety Report 7558400-7 (Version None)
Quarter: 2011Q2

REPORT INFORMATION
  Report Type: 
  Country: None (occurrence: None)
  Receive Date: 20110620
  Receipt Date: 20110607
  Transmission Date: 20111010
  Serious: Yes (Hospitalization)
  Sender: FDA-Public Use
  Company Number: PHHY2011CO50005

PATIENT
  Sex: Female

DRUGS (1)
  1. DIOVAN HCT [Suspect]
     Dosage: 160 MG OF VALSARTAN AND 12.5 MG OF HYDROCHLOROTHIAZIDE

REACTIONS (1)
  - CEREBROVASCULAR ACCIDENT [None]
